FAERS Safety Report 14842766 (Version 1)
Quarter: 2018Q2

REPORT INFORMATION
  Report Type: Spontaneous
  Country: GB (occurrence: GB)
  Receive Date: 20180503
  Receipt Date: 20180503
  Transmission Date: 20180711
  Serious: Yes (Hospitalization, Other)
  Sender: FDA-Public Use
  Company Number: PHHY2017GB071111

PATIENT
  Age: 68 Year
  Sex: Female

DRUGS (3)
  1. HYDROXYCHLOROQUINE [Suspect]
     Active Substance: HYDROXYCHLOROQUINE
     Indication: RHEUMATOID ARTHRITIS
     Dosage: 1 OT (UG/L), QW
     Route: 065
  2. METHOTREXATE. [Suspect]
     Active Substance: METHOTREXATE
     Indication: RHEUMATOID ARTHRITIS
     Dosage: 1 OT (UG/L), QW
     Route: 065
  3. SULFASALAZINE. [Suspect]
     Active Substance: SULFASALAZINE
     Indication: RHEUMATOID ARTHRITIS
     Dosage: 1 OT (UG/L), QW
     Route: 065

REACTIONS (11)
  - Intracranial mass [Recovering/Resolving]
  - Brain oedema [Recovering/Resolving]
  - Confusional state [Recovering/Resolving]
  - Aphasia [Recovering/Resolving]
  - Acute haemorrhagic leukoencephalitis [Recovering/Resolving]
  - Hemiparesis [Recovering/Resolving]
  - Leukopenia [Recovered/Resolved]
  - Cerebral aspergillosis [Recovering/Resolving]
  - Aspergillus infection [Recovering/Resolving]
  - Culture tissue specimen positive [Recovering/Resolving]
  - Brain midline shift [Recovering/Resolving]
